FAERS Safety Report 13069985 (Version 5)
Quarter: 2017Q1

REPORT INFORMATION
  Report Type: Spontaneous
  Country: BR (occurrence: BR)
  Receive Date: 20161228
  Receipt Date: 20170213
  Transmission Date: 20170428
  Serious: Yes (Hospitalization, Other)
  Sender: FDA-Public Use
  Company Number: BR-PFIZER INC-2014351462

PATIENT
  Age: 46 Year
  Sex: Female
  Weight: 85 kg

DRUGS (6)
  1. GEODON [Suspect]
     Active Substance: ZIPRASIDONE HYDROCHLORIDE\ZIPRASIDONE MESYLATE
     Dosage: UNK
     Route: 048
  2. CARBOLITIUM [Concomitant]
     Active Substance: LITHIUM CARBONATE
     Indication: DEPRESSION
     Dosage: 600 MG (3 TABLETS OF 200 MG), UNK
     Dates: start: 1994
  3. GEODON [Suspect]
     Active Substance: ZIPRASIDONE HYDROCHLORIDE\ZIPRASIDONE MESYLATE
     Dosage: TWO ^TABLETS^ OF 40 MG (80 MG), UNK
     Route: 048
     Dates: start: 201412
  4. CARBOLITIUM [Concomitant]
     Active Substance: LITHIUM CARBONATE
     Indication: BIPOLAR DISORDER
     Dosage: 600 MG (2 TABLETS OF 300MG, UNSPECIFIED FREQUENCY
     Dates: start: 1994
  5. GEODON [Suspect]
     Active Substance: ZIPRASIDONE HYDROCHLORIDE\ZIPRASIDONE MESYLATE
     Indication: BIPOLAR DISORDER
     Dosage: ONE ^TABLET^ (40 MG), 1X/DAY (AT NIGHT)
     Route: 048
     Dates: start: 2003
  6. ROHYPNOL [Concomitant]
     Active Substance: FLUNITRAZEPAM
     Indication: INSOMNIA
     Dosage: 1 MG TABLET,  AS NEEDED 1X/DAY  AT NIGHT

REACTIONS (21)
  - Eating disorder [Unknown]
  - Tension [Unknown]
  - Immunodeficiency [Unknown]
  - Red blood cell count decreased [Recovering/Resolving]
  - Carotid artery stenosis [Unknown]
  - Condition aggravated [Unknown]
  - Stress [Unknown]
  - Limb discomfort [Not Recovered/Not Resolved]
  - Malaise [Unknown]
  - Nervousness [Unknown]
  - Breast cancer metastatic [Unknown]
  - Agitation [Recovered/Resolved]
  - Depression [Unknown]
  - Renal disorder [Unknown]
  - Feeling abnormal [Recovered/Resolved]
  - Fatigue [Recovered/Resolved]
  - Insomnia [Unknown]
  - Infarction [Unknown]
  - Eye swelling [Not Recovered/Not Resolved]
  - Somnolence [Unknown]
  - Neoplasm malignant [Not Recovered/Not Resolved]

NARRATIVE: CASE EVENT DATE: 201412
